FAERS Safety Report 7597255-1 (Version None)
Quarter: 2011Q3

REPORT INFORMATION
  Report Type: 
  Country: None (occurrence: None)
  Receive Date: 20110708
  Receipt Date: 20110103
  Transmission Date: 20111222
  Serious: No
  Sender: FDA-Public Use
  Company Number: US-GLAXOSMITHKLINE-A0902519A

PATIENT
  Age: 62 Year
  Sex: Female

DRUGS (8)
  1. PROAIR HFA [Concomitant]
  2. HYDROCHLOROTHIAZIDE [Concomitant]
  3. FLOVENT [Suspect]
     Indication: ASTHMA
     Dosage: 2PUFF TWICE PER DAY
     Route: 055
     Dates: start: 20040101
  4. LEVOTHYROXINE SODIUM [Concomitant]
  5. VITAMIN D [Concomitant]
  6. DIAVAN [Concomitant]
  7. LIPITOR [Concomitant]
  8. ASPIRIN [Concomitant]

REACTIONS (5)
  - DRUG INEFFECTIVE [None]
  - PRODUCT QUALITY ISSUE [None]
  - WHEEZING [None]
  - COUGH [None]
  - DYSPNOEA [None]
